FAERS Safety Report 15207028 (Version 1)
Quarter: 2018Q3

REPORT INFORMATION
  Report Type: Spontaneous
  Country: GR (occurrence: GR)
  Receive Date: 20180727
  Receipt Date: 20180727
  Transmission Date: 20181010
  Serious: Yes (Other)
  Sender: FDA-Public Use
  Company Number: GR-009507513-1807GRC008895

PATIENT
  Age: 79 Year
  Sex: Male
  Weight: 81 kg

DRUGS (3)
  1. EZETROL [Suspect]
     Active Substance: EZETIMIBE
     Indication: CAROTID ARTERY DISEASE
     Dosage: 10 MG, QD
     Route: 048
  2. CRESTOR [Suspect]
     Active Substance: ROSUVASTATIN CALCIUM
     Indication: CAROTID ARTERY DISEASE
     Dosage: 5 MG, QOD
     Route: 048
     Dates: start: 201602, end: 201604
  3. ZARATOR [Suspect]
     Active Substance: ATORVASTATIN CALCIUM
     Indication: CAROTID ARTERY DISEASE
     Dosage: 20 MG, QD
     Route: 048
     Dates: end: 201512

REACTIONS (5)
  - Myopathy [Recovered/Resolved]
  - Blood creatine phosphokinase increased [Unknown]
  - Myopathy [Recovered/Resolved]
  - Blood cholesterol increased [Unknown]
  - Myalgia [Recovered/Resolved]
